FAERS Safety Report 10654308 (Version 1)
Quarter: 2014Q4

REPORT INFORMATION
  Report Type: Spontaneous
  Country: US (occurrence: None)
  Receive Date: 20141215
  Receipt Date: 20141215
  Transmission Date: 20150529
  Serious: No
  Sender: FDA-Public Use
  Company Number: None

PATIENT
  Age: 75 Year
  Sex: Male

DRUGS (1)
  1. CAPECITABINE 500MG TEVA PHARMACEUTICALS [Suspect]
     Active Substance: CAPECITABINE
     Indication: RECTAL CANCER
     Dosage: 3 TABLETS BID?DAYS 1-14 OF CYCLE?ORAL
     Route: 048
     Dates: start: 20141105

REACTIONS (2)
  - Hypoaesthesia [None]
  - Hyperaesthesia [None]

NARRATIVE: CASE EVENT DATE: 201412
